FAERS Safety Report 17917665 (Version 6)
Quarter: 2022Q3

REPORT INFORMATION
  Report Type: Spontaneous
  Country: US (occurrence: US)
  Receive Date: 20200619
  Receipt Date: 20220817
  Transmission Date: 20221027
  Serious: Yes (Hospitalization, Other)
  Sender: FDA-Public Use
  Company Number: US-GILEAD-2020-0473759

PATIENT
  Age: 59 Year
  Sex: Male
  Weight: 76.19 kg

DRUGS (91)
  1. VIREAD [Suspect]
     Active Substance: TENOFOVIR DISOPROXIL FUMARATE
     Indication: HIV infection
     Dosage: UNK
     Route: 048
     Dates: start: 20031206, end: 20040407
  2. VIREAD [Suspect]
     Active Substance: TENOFOVIR DISOPROXIL FUMARATE
     Dosage: UNK
     Route: 048
     Dates: start: 20020613, end: 20040407
  3. VIREAD [Suspect]
     Active Substance: TENOFOVIR DISOPROXIL FUMARATE
     Dosage: UNK
     Route: 048
     Dates: start: 20020303, end: 20040301
  4. VIREAD [Suspect]
     Active Substance: TENOFOVIR DISOPROXIL FUMARATE
     Dosage: UNK
     Route: 048
     Dates: start: 20040322, end: 20050425
  5. TRUVADA [Suspect]
     Active Substance: EMTRICITABINE\TENOFOVIR DISOPROXIL FUMARATE
     Indication: HIV infection
     Dosage: UNK
     Route: 048
     Dates: start: 200510, end: 200703
  6. TRUVADA [Suspect]
     Active Substance: EMTRICITABINE\TENOFOVIR DISOPROXIL FUMARATE
     Dosage: UNK
     Route: 048
     Dates: start: 20050715, end: 20070306
  7. ATRIPLA [Suspect]
     Active Substance: EFAVIRENZ\EMTRICITABINE\TENOFOVIR DISOPROXIL FUMARATE
     Indication: HIV infection
     Dosage: UNK
     Route: 048
     Dates: start: 200910, end: 20120314
  8. ATRIPLA [Suspect]
     Active Substance: EFAVIRENZ\EMTRICITABINE\TENOFOVIR DISOPROXIL FUMARATE
     Dosage: UNK
     Route: 048
     Dates: start: 20091026, end: 201008
  9. ATRIPLA [Suspect]
     Active Substance: EFAVIRENZ\EMTRICITABINE\TENOFOVIR DISOPROXIL FUMARATE
     Dosage: UNK
     Route: 048
     Dates: start: 20100816, end: 20120314
  10. EMTRIVA [Concomitant]
     Active Substance: EMTRICITABINE
  11. DARBEPOETIN ALFA [Concomitant]
     Active Substance: DARBEPOETIN ALFA
  12. LASIX [Concomitant]
     Active Substance: FUROSEMIDE
  13. CHOLECALCIFEROL [Concomitant]
     Active Substance: CHOLECALCIFEROL
  14. VIAGRA [Concomitant]
     Active Substance: SILDENAFIL CITRATE
  15. ACETAMINOPHEN [Concomitant]
     Active Substance: ACETAMINOPHEN
  16. AMOXICILLIN [Concomitant]
     Active Substance: AMOXICILLIN
  17. AMPICILLIN [Concomitant]
     Active Substance: AMPICILLIN
  18. ASPIRIN [Concomitant]
     Active Substance: ASPIRIN
  19. ATORVASTATIN [Concomitant]
     Active Substance: ATORVASTATIN
  20. BACTRIM [Concomitant]
     Active Substance: SULFAMETHOXAZOLE\TRIMETHOPRIM
  21. CORTISONE [Concomitant]
     Active Substance: CORTISONE
  22. CYCLOPHOSPHAMIDE [Concomitant]
     Active Substance: CYCLOPHOSPHAMIDE
  23. DEXAMETHASONE [Concomitant]
     Active Substance: DEXAMETHASONE
  24. DYAZIDE [Concomitant]
     Active Substance: HYDROCHLOROTHIAZIDE\TRIAMTERENE
  25. FLEET LAXATIVE [Concomitant]
  26. FLOMAX [Concomitant]
     Active Substance: TAMSULOSIN HYDROCHLORIDE
  27. HEPARIN [Concomitant]
     Active Substance: HEPARIN SODIUM
  28. LEVOFLOXACIN [Concomitant]
     Active Substance: LEVOFLOXACIN
  29. METHOTREXATE [Concomitant]
     Active Substance: METHOTREXATE
  30. OMEPRAZOLE [Concomitant]
     Active Substance: OMEPRAZOLE
  31. PANTOPRAZOLE [Concomitant]
     Active Substance: PANTOPRAZOLE
  32. PREDNISOLONE [Concomitant]
     Active Substance: PREDNISOLONE
  33. PREDNISONE [Concomitant]
     Active Substance: PREDNISONE
  34. RANITIDINE [Concomitant]
     Active Substance: RANITIDINE
  35. SIMVASTATIN [Concomitant]
     Active Substance: SIMVASTATIN
  36. TACROLIMUS [Concomitant]
     Active Substance: TACROLIMUS
  37. VANCOMYCIN [Concomitant]
     Active Substance: VANCOMYCIN
  38. EPZICOM [Concomitant]
     Active Substance: ABACAVIR SULFATE\LAMIVUDINE
  39. SUSTIVA [Concomitant]
     Active Substance: EFAVIRENZ
  40. TIVICAY [Concomitant]
     Active Substance: DOLUTEGRAVIR SODIUM
  41. VIDEX [Concomitant]
     Active Substance: DIDANOSINE
  42. ZIAGEN [Concomitant]
     Active Substance: ABACAVIR SULFATE
  43. ATIVAN [Concomitant]
     Active Substance: LORAZEPAM
  44. PEPCID [Concomitant]
     Active Substance: FAMOTIDINE
  45. IBUPROFEN [Concomitant]
     Active Substance: IBUPROFEN
  46. ZOFRAN [Concomitant]
     Active Substance: ONDANSETRON HYDROCHLORIDE
  47. NAPROXEN [Concomitant]
     Active Substance: NAPROXEN
  48. ATENOLOL [Concomitant]
     Active Substance: ATENOLOL
  49. BISACODYL [Concomitant]
     Active Substance: BISACODYL
  50. ACETAMINOPHEN\HYDROCODONE [Concomitant]
     Active Substance: ACETAMINOPHEN\HYDROCODONE
  51. PROCHLORPERAZINE [Concomitant]
     Active Substance: PROCHLORPERAZINE
  52. KENALOG [Concomitant]
     Active Substance: TRIAMCINOLONE ACETONIDE
  53. TERBINAFINE [Concomitant]
     Active Substance: TERBINAFINE
  54. TRAZODONE [Concomitant]
     Active Substance: TRAZODONE HYDROCHLORIDE
  55. TRIAMTERENE AND HYDROCHLOROTHIAZIDE [Concomitant]
     Active Substance: HYDROCHLOROTHIAZIDE\TRIAMTERENE
  56. BENZOYL PEROXIDE [Concomitant]
     Active Substance: BENZOYL PEROXIDE
  57. HYDROQUINONE [Concomitant]
     Active Substance: HYDROQUINONE
  58. TRETINOIN [Concomitant]
     Active Substance: TRETINOIN
  59. COLCHICINE [Concomitant]
     Active Substance: COLCHICINE
  60. KEFLEX [Concomitant]
     Active Substance: CEPHALEXIN
  61. OXYCODONE [Concomitant]
     Active Substance: OXYCODONE
  62. MYCOPHENOLIC ACID [Concomitant]
     Active Substance: MYCOPHENOLIC ACID
  63. OMEPRAZOLE [Concomitant]
     Active Substance: OMEPRAZOLE
  64. LISINOPRIL [Concomitant]
     Active Substance: LISINOPRIL
  65. COREG [Concomitant]
     Active Substance: CARVEDILOL
  66. NORVASC [Concomitant]
     Active Substance: AMLODIPINE BESYLATE
  67. LIPITOR [Concomitant]
     Active Substance: ATORVASTATIN CALCIUM
  68. MAGNESIUM [Concomitant]
     Active Substance: MAGNESIUM
  69. NEURONTIN [Concomitant]
     Active Substance: GABAPENTIN
  70. MELATONIN [Concomitant]
     Active Substance: MELATONIN
  71. BISMUTH SUBSALICYLATE\CALCIUM CARBONATE [Concomitant]
     Active Substance: BISMUTH SUBSALICYLATE\CALCIUM CARBONATE
  72. AMLODIPINE BESYLATE [Concomitant]
     Active Substance: AMLODIPINE BESYLATE
  73. LABETALOL [Concomitant]
     Active Substance: LABETALOL\LABETALOL HYDROCHLORIDE
  74. SILDENAFIL CITRATE [Concomitant]
     Active Substance: SILDENAFIL CITRATE
  75. PRAZOSIN [Concomitant]
     Active Substance: PRAZOSIN
  76. HYDRALAZINE HCL [Concomitant]
     Active Substance: HYDRALAZINE HYDROCHLORIDE
  77. CLONIDINE [Concomitant]
     Active Substance: CLONIDINE
  78. MINOXIDIL [Concomitant]
     Active Substance: MINOXIDIL
  79. TESTOSTERONE [TESTOSTERONE CIPIONATE] [Concomitant]
  80. FISH OIL [Concomitant]
     Active Substance: FISH OIL
  81. TRIAMTERENE [Concomitant]
     Active Substance: TRIAMTERENE
  82. COTRIMOXAZOLE [Concomitant]
     Active Substance: SULFAMETHOXAZOLE\TRIMETHOPRIM
  83. ACETAMINOPHEN AND CODEINE [Concomitant]
     Active Substance: ACETAMINOPHEN\CODEINE PHOSPHATE
  84. VARDENAFIL [Concomitant]
     Active Substance: VARDENAFIL HYDROCHLORIDE
  85. SULFAMETHOXAZOLE AND TRIMETHOPRIM [Concomitant]
     Active Substance: SULFAMETHOXAZOLE\TRIMETHOPRIM
  86. METOPROLOL TARTRATE [Concomitant]
     Active Substance: METOPROLOL TARTRATE
  87. PEGFILGRASTIM [Concomitant]
     Active Substance: PEGFILGRASTIM
  88. AMOXICILLIN\CLAVULANIC ACID [Concomitant]
     Active Substance: AMOXICILLIN\CLAVULANIC ACID
  89. MELOXICAM [Concomitant]
     Active Substance: MELOXICAM
  90. DICLOXACILLIN [Concomitant]
     Active Substance: DICLOXACILLIN
  91. SEVELAMER CARBONATE [Concomitant]
     Active Substance: SEVELAMER CARBONATE

REACTIONS (11)
  - End stage renal disease [Not Recovered/Not Resolved]
  - Osteoporosis [Recovered/Resolved]
  - Nephrogenic anaemia [Unknown]
  - Renal failure [Not Recovered/Not Resolved]
  - Acute kidney injury [Not Recovered/Not Resolved]
  - Nephropathy [Unknown]
  - General physical health deterioration [Not Recovered/Not Resolved]
  - Medical diet [Not Recovered/Not Resolved]
  - Libido decreased [Not Recovered/Not Resolved]
  - Bone density decreased [Unknown]
  - Fatigue [Not Recovered/Not Resolved]

NARRATIVE: CASE EVENT DATE: 20100920
